FAERS Safety Report 6093020-5 (Version None)
Quarter: 2009Q1

REPORT INFORMATION
  Report Type: 
  Country: None (occurrence: None)
  Receive Date: 20090224
  Receipt Date: 20090211
  Transmission Date: 20090719
  Serious: Yes (Hospitalization)
  Sender: FDA-Public Use
  Company Number: 310011K09USA

PATIENT
  Age: 33 Year
  Sex: Female

DRUGS (2)
  1. GONAL-F [Suspect]
     Indication: INFERTILITY
  2. PROGESTERONE [Concomitant]

REACTIONS (4)
  - ASCITES [None]
  - DEHYDRATION [None]
  - DRUG EXPOSURE DURING PREGNANCY [None]
  - PREGNANCY [None]
